FAERS Safety Report 6011595-9 (Version None)
Quarter: 2008Q4

REPORT INFORMATION
  Report Type: 
  Country: None (occurrence: None)
  Receive Date: 20081218
  Receipt Date: 20080918
  Transmission Date: 20090506
  Serious: No
  Sender: FDA-Public Use
  Company Number: US-ASTRAZENECA-2008UW19449

PATIENT
  Age: 82 Year
  Sex: Female
  Weight: 58.1 kg

DRUGS (4)
  1. CRESTOR [Suspect]
     Route: 048
     Dates: start: 20080913
  2. KENONOL [Concomitant]
  3. ATENOLOL [Concomitant]
  4. ANAX [Concomitant]

REACTIONS (1)
  - DIARRHOEA [None]
